FAERS Safety Report 6221475-1 (Version None)
Quarter: 2009Q2

REPORT INFORMATION
  Report Type: 
  Country: None (occurrence: None)
  Receive Date: 20090610
  Receipt Date: 20080718
  Transmission Date: 20091009
  Serious: Yes (Life-Threatening, Hospitalization, Disabling)
  Sender: FDA-Public Use
  Company Number: GB-AMGEN-US107464

PATIENT
  Sex: Female
  Weight: 63.1 kg

DRUGS (9)
  1. ENBREL [Suspect]
     Indication: RHEUMATOID ARTHRITIS
     Route: 058
     Dates: start: 20041207, end: 20041231
  2. DICLOFENAC SODIUM [Concomitant]
     Indication: RHEUMATOID ARTHRITIS
     Route: 048
     Dates: end: 20041230
  3. AMITRIPTLINE HYDROCHLORIDE TAB [Concomitant]
  4. PARACETAMOL [Concomitant]
     Dosage: 2 TABLETS ONCE DAILY OR AS REQUIRED
  5. VOLTAROL - SLOW RELEASE [Concomitant]
  6. FERROUS SULFATE TAB [Concomitant]
     Indication: ANAEMIA
  7. LEFLUNOMIDE [Concomitant]
     Indication: RHEUMATOID ARTHRITIS
     Route: 048
     Dates: start: 20040701, end: 20041230
  8. CODEINE PHOSPHATE/PARACETAMOL [Concomitant]
     Dosage: 30/500 MG TWICE OMNI NOCTE
  9. UNSPECIFIED STEROIDS [Concomitant]
     Route: 048

REACTIONS (20)
  - ATRIAL FIBRILLATION [None]
  - BALANCE DISORDER [None]
  - CHILLS [None]
  - CUTANEOUS VASCULITIS [None]
  - DIARRHOEA [None]
  - DIZZINESS [None]
  - EOSINOPHILIC CELLULITIS [None]
  - FEELING COLD [None]
  - GAIT DISTURBANCE [None]
  - INJECTION SITE INFECTION [None]
  - LOSS OF CONSCIOUSNESS [None]
  - ORGAN FAILURE [None]
  - OTOTOXICITY [None]
  - PSEUDOMONAS INFECTION [None]
  - RENAL FAILURE ACUTE [None]
  - SEPSIS [None]
  - SEPTIC SHOCK [None]
  - SKIN EXFOLIATION [None]
  - STREPTOCOCCAL INFECTION [None]
  - VOMITING [None]
